FAERS Safety Report 24772906 (Version 1)
Quarter: 2024Q4

REPORT INFORMATION
  Report Type: Report from Study
  Country: NL (occurrence: NL)
  Receive Date: 20241225
  Receipt Date: 20241225
  Transmission Date: 20250114
  Serious: Yes (Other)
  Sender: ROCHE
  Company Number: NL-ROCHE-10000092645

PATIENT

DRUGS (1)
  1. ALECTINIB [Suspect]
     Active Substance: ALECTINIB
     Indication: Non-small cell lung cancer
     Route: 065

REACTIONS (16)
  - Hepatotoxicity [Unknown]
  - Renal impairment [Unknown]
  - Blood creatine phosphokinase increased [Unknown]
  - Bradycardia [Unknown]
  - Fatigue [Unknown]
  - Rash [Unknown]
  - Weight increased [Unknown]
  - Anaemia [Unknown]
  - Diarrhoea [Unknown]
  - Hypercholesterolaemia [Unknown]
  - Myalgia [Unknown]
  - Oedema [Unknown]
  - Dyspnoea [Unknown]
  - Nausea [Unknown]
  - Cardiac failure [Unknown]
  - Pneumonitis [Unknown]
